FAERS Safety Report 10503930 (Version 2)
Quarter: 2014Q4

REPORT INFORMATION
  Report Type: Spontaneous
  Country: US (occurrence: None)
  Receive Date: 20141006
  Receipt Date: 20141021
  Transmission Date: 20150528
  Serious: Yes (Life-Threatening, Hospitalization, Other)
  Sender: FDA-Public Use
  Company Number: 2014EXPUS00247

PATIENT
  Age: 77 Year
  Sex: Female
  Weight: 62.6 kg

DRUGS (4)
  1. FENTANYL (FENTANYL CITRATE) [Concomitant]
     Active Substance: FENTANYL CITRATE
  2. ETOMIDATE (ETOMIDATE) [Concomitant]
  3. EXPAREL [Suspect]
     Active Substance: BUPIVACAINE
     Indication: POSTOPERATIVE ANALGESIA
     Dosage: 266 MG, 1X,INTERCOSTAL, INTRAMUSCULAR
     Route: 030
     Dates: start: 20140915, end: 20140915
  4. VECURONIUM (VECURONIUM) [Concomitant]

REACTIONS (4)
  - Miosis [None]
  - Respiratory arrest [None]
  - Somnolence [None]
  - Mydriasis [None]

NARRATIVE: CASE EVENT DATE: 20140915
